FAERS Safety Report 8925677 (Version 1)
Quarter: 2012Q4

REPORT INFORMATION
  Report Type: 
  Country: US (occurrence: US)
  Receive Date: 20121126
  Receipt Date: 20121126
  Transmission Date: 20130627
  Serious: Yes (Other)
  Sender: FDA-Public Use
  Company Number: US-PFIZER INC-2012292172

PATIENT
  Age: 61 Year
  Sex: Female
  Weight: 45.08 kg

DRUGS (6)
  1. REVATIO [Suspect]
     Indication: PULMONARY HYPERTENSION
     Dosage: 20 mg, 3x/day
     Route: 048
     Dates: start: 2012, end: 2012
  2. REVATIO [Suspect]
     Dosage: 40 mg, 3x/day
     Route: 048
     Dates: start: 2012
  3. REVATIO [Suspect]
     Dosage: UNK, 3x/day
     Route: 048
     Dates: end: 2012
  4. HYDROCHLOROTHIAZIDE [Concomitant]
     Indication: BLOOD PRESSURE HIGH
     Dosage: UNK
  5. TRAMADOL [Concomitant]
     Dosage: 50 mg, as needed
  6. DIFLUCAN [Concomitant]
     Indication: YEAST INFECTION
     Dosage: UNK

REACTIONS (6)
  - Incorrect dose administered [Unknown]
  - Dyspnoea [Unknown]
  - Electrocardiogram abnormal [Unknown]
  - Chest pain [Unknown]
  - Heart rate increased [Unknown]
  - Bronchitis [Unknown]
